FAERS Safety Report 11230124 (Version 9)
Quarter: 2021Q1

REPORT INFORMATION
  Report Type: Spontaneous
  Country: US (occurrence: US)
  Receive Date: 20150701
  Receipt Date: 20210217
  Transmission Date: 20210419
  Serious: No
  Sender: FDA-Public Use
  Company Number: US-009507513-1506USA001293

PATIENT
  Age: 54 Year
  Sex: Female

DRUGS (7)
  1. ASMANEX [Suspect]
     Active Substance: MOMETASONE FUROATE
     Dosage: ONE PUFF IN MORNING AND ONE PUFF IN NIGHT
     Route: 048
     Dates: start: 20201215
  2. ASMANEX [Suspect]
     Active Substance: MOMETASONE FUROATE
     Dosage: UNK
     Dates: start: 2012
  3. ASMANEX [Suspect]
     Active Substance: MOMETASONE FUROATE
     Dosage: UNK
  4. ASMANEX [Suspect]
     Active Substance: MOMETASONE FUROATE
     Dosage: 1 PUFF TWICE A DAY
  5. ASMANEX [Suspect]
     Active Substance: MOMETASONE FUROATE
     Indication: ASTHMA
     Dosage: 1 PUFF TWICE DAILY
  6. ASMANEX [Suspect]
     Active Substance: MOMETASONE FUROATE
     Dosage: 1 PUFF TWICE A DAY
  7. ASMANEX [Suspect]
     Active Substance: MOMETASONE FUROATE
     Dosage: UNK

REACTIONS (12)
  - Lung disorder [Unknown]
  - Malaise [Unknown]
  - Poor quality device used [Unknown]
  - Product taste abnormal [Unknown]
  - Product odour abnormal [Unknown]
  - Dysgeusia [Not Recovered/Not Resolved]
  - Product quality issue [Unknown]
  - Product dose omission issue [Unknown]
  - Chest discomfort [Unknown]
  - Chest discomfort [Not Recovered/Not Resolved]
  - Product container issue [Unknown]
  - Product taste abnormal [Unknown]

NARRATIVE: CASE EVENT DATE: 20150531
